FAERS Safety Report 15506009 (Version 3)
Quarter: 2018Q4

REPORT INFORMATION
  Report Type: Report from Study
  Country: None (occurrence: US)
  Receive Date: 20181016
  Receipt Date: 20181105
  Transmission Date: 20190205
  Serious: Yes (Other)
  Sender: FDA-Public Use
  Company Number: US-ABBVIE-18K-163-2519081-00

PATIENT
  Age: 62 Year
  Sex: Male
  Weight: 87.17 kg

DRUGS (1)
  1. MAVYRET [Suspect]
     Active Substance: GLECAPREVIR\PIBRENTASVIR
     Indication: HEPATITIS C
     Dosage: START DATE TEXT-JANUARY OR FEBRUARY 2018
     Route: 048
     Dates: start: 2018, end: 2018

REACTIONS (2)
  - Ulcer haemorrhage [Recovering/Resolving]
  - Ulcer [Unknown]

NARRATIVE: CASE EVENT DATE: 2018
